FAERS Safety Report 16782479 (Version 40)
Quarter: 2023Q2

REPORT INFORMATION
  Report Type: Other
  Country: None (occurrence: DE)
  Receive Date: 20190906
  Receipt Date: 20230515
  Transmission Date: 20230722
  Serious: Yes (Other)
  Sender: FDA-Public Use
  Company Number: DE-ASCEND THERAPEUTICS US, LLC-2074123

PATIENT
  Age: 37 Year
  Sex: Female
  Weight: 37 kg

DRUGS (25)
  1. ESTROGEL [Suspect]
     Active Substance: ESTRADIOL
     Indication: Osteoporosis
     Route: 065
     Dates: end: 20190812
  2. ESTROGEL [Suspect]
     Active Substance: ESTRADIOL
  3. ESTRADIOL HEMIHYDRATE [Suspect]
     Active Substance: ESTRADIOL HEMIHYDRATE
     Route: 065
     Dates: end: 20190812
  4. PROGESTERONE [Suspect]
     Active Substance: PROGESTERONE
     Route: 065
     Dates: start: 20190812
  5. OCRELIZUMAB [Suspect]
     Active Substance: OCRELIZUMAB
     Route: 042
     Dates: start: 20190701
  6. Ferrum (Ferrous Gluconate) ?Drug use for unknown indication [Concomitant]
     Route: 065
  7. Folinic Acid (Folinic Acid?Drug use for unknown indication [Concomitant]
     Route: 065
  8. Calcium ?Drug use for unknown indication?Chewable tablets together wit [Concomitant]
     Route: 065
  9. Fluvoxamine?Drug use for unknown indication [Concomitant]
     Route: 065
  10. TOLTERODINE(TOLTERODINE) [Concomitant]
     Route: 065
  11. PROGESTERONE [Suspect]
     Active Substance: PROGESTERONE
     Route: 065
  12. ESTRADIOL [Suspect]
     Active Substance: ESTRADIOL
     Route: 065
  13. OCRELIZUMAB [Suspect]
     Active Substance: OCRELIZUMAB
     Route: 042
     Dates: start: 20200106
  14. OCREVUS [Suspect]
     Active Substance: OCRELIZUMAB
     Route: 042
     Dates: start: 20200706
  15. OCREVUS [Suspect]
     Active Substance: OCRELIZUMAB
     Route: 042
     Dates: start: 20210313
  16. COMIRNATY [Suspect]
     Active Substance: TOZINAMERAN
     Route: 065
     Dates: start: 20210708
  17. COMIRNATY [Suspect]
     Active Substance: TOZINAMERAN
     Route: 065
     Dates: start: 20210805
  18. OCREVUS [Suspect]
     Active Substance: OCRELIZUMAB
     Route: 042
     Dates: start: 20210318
  19. OCREVUS [Suspect]
     Active Substance: OCRELIZUMAB
     Route: 042
     Dates: start: 20210927
  20. TOLTERODINE(TOLTERODINE) [Concomitant]
     Route: 065
  21. OCREVUS [Suspect]
     Active Substance: OCRELIZUMAB
     Route: 042
     Dates: start: 20200706
  22. CORTISONE [Suspect]
     Active Substance: CORTISONE
     Route: 042
     Dates: start: 20220404
  23. CORTISONE [Suspect]
     Active Substance: CORTISONE
     Route: 050
  24. OCREVUS [Suspect]
     Active Substance: OCRELIZUMAB
     Route: 050
  25. PROGESTERONE [Suspect]
     Active Substance: PROGESTERONE

REACTIONS (93)
  - Salivary hypersecretion [Recovered/Resolved]
  - Myalgia [Not Recovered/Not Resolved]
  - Blood pressure decreased [Recovered/Resolved]
  - White blood cell count decreased [Recovering/Resolving]
  - Arthralgia [Not Recovered/Not Resolved]
  - Throat irritation [Recovered/Resolved]
  - Cardiovascular insufficiency [Not Recovered/Not Resolved]
  - Nasopharyngitis [Recovered/Resolved]
  - Chest pain [Not Recovered/Not Resolved]
  - Multiple sclerosis relapse [Not Recovered/Not Resolved]
  - Muscular weakness [Not Recovered/Not Resolved]
  - Paraesthesia [Recovering/Resolving]
  - Panic attack [Not Recovered/Not Resolved]
  - Anxiety [Not Recovered/Not Resolved]
  - Nerve compression [Not Recovered/Not Resolved]
  - Coordination abnormal [Not Recovered/Not Resolved]
  - Coordination abnormal [Not Recovered/Not Resolved]
  - Depression [Not Recovered/Not Resolved]
  - Skin burning sensation [Recovered/Resolved]
  - Fatigue [Recovered/Resolved]
  - Fatigue [Not Recovered/Not Resolved]
  - Nausea [Not Recovered/Not Resolved]
  - Migraine [Recovered/Resolved]
  - Visual impairment [Recovered/Resolved]
  - Food poisoning [Recovered/Resolved]
  - Circulatory collapse [Recovered/Resolved]
  - Weight decreased [Recovered/Resolved]
  - Limb discomfort [Not Recovered/Not Resolved]
  - Fluid retention [Not Recovered/Not Resolved]
  - Visual field defect [Recovered/Resolved]
  - Visual field defect [Recovered/Resolved]
  - Vision blurred [Recovered/Resolved]
  - Insomnia [Recovered/Resolved]
  - Nail bed inflammation [Not Recovered/Not Resolved]
  - Urinary incontinence [Not Recovered/Not Resolved]
  - Musculoskeletal stiffness [Recovered/Resolved]
  - Gait disturbance [Not Recovered/Not Resolved]
  - Mucosal dryness [Not Recovered/Not Resolved]
  - Oropharyngeal pain [Recovered/Resolved]
  - Oropharyngeal pain [Not Recovered/Not Resolved]
  - Psoriasis [Recovered/Resolved]
  - Back pain [Not Recovered/Not Resolved]
  - Oedema [Unknown]
  - Headache [Recovered/Resolved]
  - Constipation [Recovered/Resolved]
  - Arthralgia [Not Recovered/Not Resolved]
  - Pain in extremity [Recovered/Resolved]
  - Arthralgia [Not Recovered/Not Resolved]
  - Limb discomfort [Recovered/Resolved]
  - Oedema [Unknown]
  - Depression [Not Recovered/Not Resolved]
  - Depression [Recovered/Resolved]
  - Intentional self-injury [Not Recovered/Not Resolved]
  - Anger [Not Recovered/Not Resolved]
  - Depression [Not Recovered/Not Resolved]
  - Headache [Recovered/Resolved]
  - B-lymphocyte count increased [Recovered/Resolved]
  - Dental prosthesis placement [Unknown]
  - Pain in jaw [Not Recovered/Not Resolved]
  - Device failure [Not Recovered/Not Resolved]
  - Drug ineffective [Unknown]
  - Pruritus [Not Recovered/Not Resolved]
  - Bacterial vulvovaginitis [Not Recovered/Not Resolved]
  - Fatigue [Recovered/Resolved]
  - Pain in extremity [Recovered/Resolved]
  - Toothache [Recovered/Resolved]
  - Hypoaesthesia [Recovered/Resolved]
  - Abdominal pain upper [Recovered/Resolved]
  - Influenza [Recovered/Resolved]
  - Mood swings [Not Recovered/Not Resolved]
  - B-lymphocyte count increased [Not Recovered/Not Resolved]
  - Off label use [Unknown]
  - Suicidal ideation [Recovered/Resolved]
  - Weight increased [Not Recovered/Not Resolved]
  - Pyrexia [Recovered/Resolved]
  - Chills [Recovered/Resolved]
  - Tendon pain [Not Recovered/Not Resolved]
  - Insomnia [Recovered/Resolved]
  - Oropharyngeal pain [Not Recovered/Not Resolved]
  - Aggression [Not Recovered/Not Resolved]
  - Myalgia [Not Recovered/Not Resolved]
  - Weight decreased [Recovering/Resolving]
  - Tooth loss [Recovered/Resolved]
  - COVID-19 [Recovered/Resolved]
  - Hot flush [Unknown]
  - Fine motor skill dysfunction [Recovering/Resolving]
  - Feeling drunk [Recovered/Resolved]
  - Hypoaesthesia [Not Recovered/Not Resolved]
  - Throat irritation [Not Recovered/Not Resolved]
  - Pain in extremity [Not Recovered/Not Resolved]
  - B-lymphocyte count decreased [Not Recovered/Not Resolved]
  - Influenza like illness [Not Recovered/Not Resolved]
  - Nasopharyngitis [Unknown]

NARRATIVE: CASE EVENT DATE: 20190701
